FAERS Safety Report 6753093-0 (Version None)
Quarter: 2010Q2

REPORT INFORMATION
  Report Type: 
  Country: None (occurrence: None)
  Receive Date: 20100603
  Receipt Date: 20100527
  Transmission Date: 20101027
  Serious: Yes (Hospitalization)
  Sender: FDA-Public Use
  Company Number: PHHO2010BE06756

PATIENT
  Sex: Female
  Weight: 81 kg

DRUGS (1)
  1. CGS 20267 T30748+TAB [Suspect]
     Indication: BREAST CANCER
     Dosage: 1 TABLET EACH DAY
     Route: 048
     Dates: start: 20040910

REACTIONS (2)
  - HIP ARTHROPLASTY [None]
  - OSTEOARTHRITIS [None]
